FAERS Safety Report 5093428-0 (Version None)
Quarter: 2006Q3

REPORT INFORMATION
  Report Type: 
  Country: None (occurrence: None)
  Receive Date: 20060828
  Receipt Date: 20060817
  Transmission Date: 20061208
  Serious: Yes (Hospitalization)
  Sender: FDA-Public Use
  Company Number: 2006-00629

PATIENT
  Age: 84 Year
  Sex: Male
  Weight: 51 kg

DRUGS (12)
  1. VELCADE [Suspect]
     Indication: MULTIPLE MYELOMA
     Dosage: 1.80 MG, INTRAVENOUS
     Route: 042
     Dates: start: 20060308, end: 20060320
  2. LORON (CLODRONATE DISODIUM) [Concomitant]
  3. CIPROFLOXACIN [Concomitant]
  4. CHLORHEXIDINE (CHLORRHEXIDINE) [Concomitant]
  5. FLUCONAZOLE [Concomitant]
  6. ACICLOVIIR (ACICLOVIR) [Concomitant]
  7. SODIUM CHLORIDE [Concomitant]
  8. ALLOPURINOL [Concomitant]
  9. GRANISETRON (GRANISETRON) [Concomitant]
  10. EPOETIN ALFA (EPOETIN ALFA) [Concomitant]
  11. MANEVAC (SENNA, ISPAGHULA) [Concomitant]
  12. OMEPRAZOLE [Concomitant]

REACTIONS (5)
  - CHEST PAIN [None]
  - DYSPNOEA [None]
  - EJECTION FRACTION DECREASED [None]
  - PNEUMONIA [None]
  - TROPONIN I INCREASED [None]
